FAERS Safety Report 22633036 (Version 1)
Quarter: 2023Q2

REPORT INFORMATION
  Report Type: Spontaneous
  Country: ES (occurrence: ES)
  Receive Date: 20230623
  Receipt Date: 20230623
  Transmission Date: 20230722
  Serious: Yes (Other)
  Sender: FDA-Public Use
  Company Number: None

PATIENT
  Age: 59 Year
  Sex: Male

DRUGS (1)
  1. OBINUTUZUMAB [Suspect]
     Active Substance: OBINUTUZUMAB
     Indication: B-cell small lymphocytic lymphoma
     Dosage: 1/SEMANA
     Route: 042
     Dates: start: 20230531, end: 20230531

REACTIONS (5)
  - Nausea [Recovered/Resolved]
  - Hypertension [Recovered/Resolved]
  - Hyperhidrosis [Recovered/Resolved]
  - Myalgia [Recovered/Resolved]
  - Myoclonus [Recovered/Resolved]

NARRATIVE: CASE EVENT DATE: 20230531
